FAERS Safety Report 17702689 (Version 1)
Quarter: 2020Q2

REPORT INFORMATION
  Report Type: Spontaneous
  Country: US (occurrence: US)
  Receive Date: 20200423
  Receipt Date: 20200423
  Transmission Date: 20200714
  Serious: Yes (Hospitalization)
  Sender: FDA-Public Use
  Company Number: US-FRESENIUS KABI-FK202003970

PATIENT
  Age: 52 Year
  Sex: Female

DRUGS (8)
  1. LINEZOLID. [Suspect]
     Active Substance: LINEZOLID
     Indication: ENTEROBACTER INFECTION
  2. LINEZOLID. [Suspect]
     Active Substance: LINEZOLID
     Indication: ENTEROCOCCAL INFECTION
     Route: 048
  3. MEROPENEM. [Concomitant]
     Active Substance: MEROPENEM
  4. LINEZOLID (MANUFACTURER UNKNOWN) [Suspect]
     Active Substance: LINEZOLID
     Indication: ENTEROCOCCAL INFECTION
     Route: 042
  5. ERTAPENEM. [Concomitant]
     Active Substance: ERTAPENEM SODIUM
  6. LINEZOLID (MANUFACTURER UNKNOWN) [Suspect]
     Active Substance: LINEZOLID
     Indication: ENTEROBACTER INFECTION
  7. LINEZOLID. [Suspect]
     Active Substance: LINEZOLID
     Indication: ESCHERICHIA INFECTION
  8. LINEZOLID (MANUFACTURER UNKNOWN) [Suspect]
     Active Substance: LINEZOLID
     Indication: ESCHERICHIA INFECTION

REACTIONS (5)
  - Hypoglycaemia [Recovering/Resolving]
  - Metabolic acidosis [Recovering/Resolving]
  - Toxicity to various agents [Recovering/Resolving]
  - Pancreatitis acute [Recovering/Resolving]
  - Lactic acidosis [Recovering/Resolving]
